FAERS Safety Report 20987111 (Version 4)
Quarter: 2023Q1

REPORT INFORMATION
  Report Type: Spontaneous
  Country: US (occurrence: US)
  Receive Date: 20220621
  Receipt Date: 20230330
  Transmission Date: 20230417
  Serious: No
  Sender: FDA-Public Use
  Company Number: US-PFIZER INC-202200799160

PATIENT
  Age: 74 Year
  Sex: Female
  Weight: 34.93 kg

DRUGS (2)
  1. SOMATROPIN [Suspect]
     Active Substance: SOMATROPIN
     Indication: Hypopituitarism
     Dosage: 0.6 MG, DAILY
  2. SOMATROPIN [Suspect]
     Active Substance: SOMATROPIN
     Indication: Osteoporosis

REACTIONS (3)
  - Drug effective for unapproved indication [Unknown]
  - Device issue [Unknown]
  - Device operational issue [Unknown]
